FAERS Safety Report 12671817 (Version 1)
Quarter: 2016Q3

REPORT INFORMATION
  Report Type: Spontaneous
  Country: CA (occurrence: CA)
  Receive Date: 20160822
  Receipt Date: 20160822
  Transmission Date: 20161109
  Serious: Yes (Death, Other)
  Sender: FDA-Public Use
  Company Number: CA-GLAXOSMITHKLINE-CA2016GSK119399

PATIENT
  Age: 43 Year
  Sex: Male

DRUGS (36)
  1. BECLOMETHASONE DIPROPIONATE [Concomitant]
     Active Substance: BECLOMETHASONE DIPROPIONATE
  2. DEXEDRINE [Concomitant]
     Active Substance: DEXTROAMPHETAMINE SULFATE
  3. GLYCERIN. [Concomitant]
     Active Substance: GLYCERIN
  4. IMITREX [Concomitant]
     Active Substance: SUMATRIPTAN SUCCINATE
  5. MINOCYCLINE [Concomitant]
     Active Substance: MINOCYCLINE\MINOCYCLINE HYDROCHLORIDE
  6. SENNOSIDES. [Concomitant]
     Active Substance: SENNOSIDES
     Dosage: 8.6 MG, UNK
  7. ZINC [Concomitant]
     Active Substance: ZINC\ZINC CHLORIDE
  8. GINKGO BILOBA [Concomitant]
     Active Substance: GINKGO
  9. LECITHIN [Concomitant]
     Active Substance: LECITHIN
  10. METOCLOPRAMIDE. [Concomitant]
     Active Substance: METOCLOPRAMIDE
  11. SUDAFED [Concomitant]
     Active Substance: PSEUDOEPHEDRINE HYDROCHLORIDE
  12. VITAMIN A [Concomitant]
     Active Substance: VITAMIN A
  13. VITAMIN E [Concomitant]
     Active Substance: .ALPHA.-TOCOPHEROL
  14. DIDANOSINE. [Suspect]
     Active Substance: DIDANOSINE
     Indication: PRODUCT USED FOR UNKNOWN INDICATION
     Dosage: 400 MG, UNK
     Route: 048
  15. ZERIT [Suspect]
     Active Substance: STAVUDINE
     Indication: PRODUCT USED FOR UNKNOWN INDICATION
     Dosage: 80 MG, UNK
     Route: 048
  16. BETACAROTENE [Concomitant]
     Active Substance: .BETA.-CAROTENE
  17. FLURBIPROFEN. [Concomitant]
     Active Substance: FLURBIPROFEN
  18. VIRAMUNE [Suspect]
     Active Substance: NEVIRAPINE
     Indication: PRODUCT USED FOR UNKNOWN INDICATION
     Dosage: 400 MG, UNK
     Route: 048
  19. SULFAMETHOXAZOLE-TRIMETHOPRIM (SMZ) [Concomitant]
     Active Substance: SULFAMETHOXAZOLE\TRIMETHOPRIM
  20. VITAMIN B12 [Concomitant]
     Active Substance: CYANOCOBALAMIN
  21. 3TC [Suspect]
     Active Substance: LAMIVUDINE
     Indication: PRODUCT USED FOR UNKNOWN INDICATION
     Dosage: 300 MG, UNK
     Route: 048
  22. ACIDOPHILUS [Concomitant]
     Active Substance: LACTOBACILLUS ACIDOPHILUS
  23. FOLIC ACID. [Concomitant]
     Active Substance: FOLIC ACID
  24. RATIO-TECNAL [Concomitant]
  25. VITAMIN C [Concomitant]
     Active Substance: ASCORBIC ACID
  26. CHROMIUM [Concomitant]
     Active Substance: CHROMIC CHLORIDE\CHROMIUM
  27. NIACIN. [Concomitant]
     Active Substance: NIACIN
  28. OTRIVIN [Concomitant]
     Active Substance: XYLOMETAZOLINE
  29. TESTOSTERONE. [Concomitant]
     Active Substance: TESTOSTERONE
  30. VITAMIN B COMPLEX [Concomitant]
     Active Substance: CYANOCOBALAMIN\DEXPANTHENOL\NIACINAMIDE\PYRIDOXINE HYDROCHLORIDE\RIBOFLAVIN 5^-PHOSPHATE SODIUM\THIAMINE HYDROCHLORIDE\VITAMIN B COMPLEX
  31. PROLEUKIN [Suspect]
     Active Substance: ALDESLEUKIN
     Indication: PRODUCT USED FOR UNKNOWN INDICATION
     Dosage: 4.5 MILLION IU, BID
     Route: 058
  32. CHLORAL HYDRATE [Concomitant]
     Active Substance: CHLORAL HYDRATE
  33. GRAVOL [Concomitant]
     Active Substance: DIMENHYDRINATE
  34. MAGNESIUM [Concomitant]
     Active Substance: MAGNESIUM
  35. SELENIUM [Concomitant]
     Active Substance: SELENIUM
  36. SERZONE [Concomitant]
     Active Substance: NEFAZODONE HYDROCHLORIDE

REACTIONS (9)
  - Ascites [Unknown]
  - Gamma-glutamyltransferase increased [Unknown]
  - Hepatic failure [Unknown]
  - Hepatitis fulminant [Unknown]
  - Jaundice [Unknown]
  - Abdominal discomfort [Unknown]
  - Alanine aminotransferase increased [Unknown]
  - Vomiting [Unknown]
  - Death [Fatal]
